FAERS Safety Report 8365040-9 (Version None)
Quarter: 2012Q2

REPORT INFORMATION
  Report Type: 
  Country: None (occurrence: None)
  Receive Date: 20120516
  Receipt Date: 20120510
  Transmission Date: 20120825
  Serious: Yes (Hospitalization)
  Sender: FDA-Public Use
  Company Number: FR-GLAXOSMITHKLINE-B0801059A

PATIENT
  Age: 76 Year
  Sex: Male

DRUGS (7)
  1. ARIXTRA [Suspect]
     Indication: DEEP VEIN THROMBOSIS
     Dosage: 2.5MG PER DAY
  2. NOVOLOG [Concomitant]
     Route: 065
  3. BACLOFEN [Concomitant]
     Route: 065
  4. AMARYL [Concomitant]
     Route: 065
  5. ACETAMINOPHEN [Concomitant]
     Route: 065
  6. FOLIC ACID [Concomitant]
     Route: 065
  7. TOCO 500 [Concomitant]
     Route: 065

REACTIONS (3)
  - COMA [None]
  - OFF LABEL USE [None]
  - CEREBRAL HAEMATOMA [None]
